FAERS Safety Report 11992556 (Version 1)
Quarter: 2016Q1

REPORT INFORMATION
  Report Type: Spontaneous
  Country: US (occurrence: US)
  Receive Date: 20160203
  Receipt Date: 20160203
  Transmission Date: 20160526
  Serious: No
  Sender: FDA-Public Use
  Company Number: US-UCBSA-2015008670

PATIENT
  Sex: Female
  Weight: 61.7 kg

DRUGS (2)
  1. KEPPRA [Suspect]
     Active Substance: LEVETIRACETAM
     Indication: SEIZURE
     Dosage: 2000 MG, 2X/DAY (BID)
  2. ZONEGRAN [Concomitant]
     Active Substance: ZONISAMIDE
     Indication: SEIZURE
     Dosage: 200 MG, ONCE DAILY (QD); 100 MG 2 CAPSULES AT BED TIME

REACTIONS (3)
  - Off label use [Unknown]
  - Initial insomnia [Not Recovered/Not Resolved]
  - Overdose [Unknown]
